FAERS Safety Report 18628460 (Version 1)
Quarter: 2020Q4

REPORT INFORMATION
  Report Type: Spontaneous
  Country: US (occurrence: US)
  Receive Date: 20201217
  Receipt Date: 20201217
  Transmission Date: 20210114
  Serious: Yes (Life-Threatening, Hospitalization, Other)
  Sender: FDA-Public Use
  Company Number: US-MYLANLABS-2020M1102584

PATIENT
  Age: 45 Year
  Sex: Female

DRUGS (3)
  1. HYDROMORPHONE [Concomitant]
     Active Substance: HYDROMORPHONE
     Indication: BACK PAIN
     Route: 065
  2. DIAZEPAM. [Suspect]
     Active Substance: DIAZEPAM
     Indication: BACK PAIN
     Route: 065
  3. PARACETAMOL [Suspect]
     Active Substance: ACETAMINOPHEN
     Indication: BACK PAIN
     Route: 048

REACTIONS (6)
  - Overdose [Recovered/Resolved]
  - Confusional state [Unknown]
  - Acute respiratory failure [Recovered/Resolved]
  - Hallucination [Unknown]
  - Acute hepatic failure [Recovered/Resolved]
  - Drug withdrawal syndrome [Unknown]
